FAERS Safety Report 23128017 (Version 1)
Quarter: 2023Q4

REPORT INFORMATION
  Report Type: Spontaneous
  Country: LT (occurrence: LT)
  Receive Date: 20231031
  Receipt Date: 20231031
  Transmission Date: 20240110
  Serious: Yes (Hospitalization)
  Sender: FDA-Public Use
  Company Number: LT-Orion Corporation ORION PHARMA-MIRZ2023-0009

PATIENT
  Age: 30 Year
  Sex: Female

DRUGS (18)
  1. RISPERDAL [Suspect]
     Active Substance: RISPERIDONE
     Indication: Schizophrenia
     Dosage: UP TO 4MG/DAY
     Route: 065
  2. RISPERDAL [Suspect]
     Active Substance: RISPERIDONE
     Dosage: UP TO 4MG/DAY
     Route: 065
  3. HALOPERIDOL [Suspect]
     Active Substance: HALOPERIDOL
     Indication: Schizophrenia
     Dosage: UP TO 10MG/DAY
     Route: 065
  4. TIAPRIDE [Suspect]
     Active Substance: TIAPRIDE
     Indication: Schizophrenia
     Dosage: UP TO 300MG/DAY
     Route: 065
  5. TIAPRIDE [Suspect]
     Active Substance: TIAPRIDE
     Dosage: UP TO 200MG/DAY
     Route: 065
  6. TIAPRIDE [Suspect]
     Active Substance: TIAPRIDE
     Dosage: UP TO 300MG/DAY
     Route: 065
  7. LORAZEPAM [Suspect]
     Active Substance: LORAZEPAM
     Indication: Schizophrenia
     Dosage: UP TO 5MG/DAY
     Route: 065
  8. OLANZAPINE [Suspect]
     Active Substance: OLANZAPINE
     Indication: Schizophrenia
     Dosage: LARGE AMOUNT
     Route: 065
  9. DIAZEPAM [Suspect]
     Active Substance: DIAZEPAM
     Indication: Schizophrenia
     Dosage: UP TO 20MG/DAY
     Route: 065
  10. DIAZEPAM [Suspect]
     Active Substance: DIAZEPAM
     Dosage: UP TO 10MG/DAY
     Route: 065
  11. MIRTAZAPINE [Suspect]
     Active Substance: MIRTAZAPINE
     Indication: Schizophrenia
     Route: 065
  12. TRIHEXYPHENIDYL [Suspect]
     Active Substance: TRIHEXYPHENIDYL
     Indication: Schizophrenia
     Dosage: UP TO 4MG/DAY
     Route: 065
  13. TRIHEXYPHENIDYL [Suspect]
     Active Substance: TRIHEXYPHENIDYL
     Dosage: UP TO 4MG/DAY
     Route: 065
  14. TRIHEXYPHENIDYL [Suspect]
     Active Substance: TRIHEXYPHENIDYL
     Dosage: UP TO 4MG/DAY
     Route: 065
  15. QUETIAPINE [Suspect]
     Active Substance: QUETIAPINE
     Indication: Schizophrenia
     Dosage: UP TO 400 MG/DAY
     Route: 065
  16. QUETIAPINE [Suspect]
     Active Substance: QUETIAPINE
     Dosage: UP TO 200 MG/DAY
     Route: 065
  17. CARBAMAZEPINE [Suspect]
     Active Substance: CARBAMAZEPINE
     Indication: Schizophrenia
     Dosage: LARGE AMOUNT
     Route: 065
  18. CARBAMAZEPINE [Suspect]
     Active Substance: CARBAMAZEPINE
     Dosage: UP TO 200MG/DAY
     Route: 065

REACTIONS (4)
  - Intentional overdose [Recovered/Resolved]
  - Poisoning [Recovered/Resolved]
  - Suicide attempt [Recovered/Resolved]
  - Off label use [Recovered/Resolved]
